FAERS Safety Report 16515748 (Version 2)
Quarter: 2019Q3

REPORT INFORMATION
  Report Type: Spontaneous
  Country: JP (occurrence: JP)
  Receive Date: 20190702
  Receipt Date: 20190730
  Transmission Date: 20191004
  Serious: Yes (Hospitalization)
  Sender: FDA-Public Use
  Company Number: JP-CMP PHARMA-2019CMP00010

PATIENT
  Age: 45 Year
  Sex: Male

DRUGS (2)
  1. LIDOCAINE. [Concomitant]
     Active Substance: LIDOCAINE
     Dosage: 1 ML, ONCE
     Route: 065
  2. TRIAMCINOLONE [Suspect]
     Active Substance: TRIAMCINOLONE
     Indication: TRIGGER FINGER
     Dosage: 40 MG, ONCE
     Route: 065

REACTIONS (1)
  - Tendon rupture [Recovered/Resolved]
